FAERS Safety Report 16846161 (Version 1)
Quarter: 2019Q3

REPORT INFORMATION
  Report Type: Spontaneous
  Country: US (occurrence: US)
  Receive Date: 20190924
  Receipt Date: 20190924
  Transmission Date: 20191005
  Serious: No
  Sender: FDA-Public Use
  Company Number: US-SA-2019SA257994

PATIENT
  Sex: Female

DRUGS (2)
  1. ORENCIA [Concomitant]
     Active Substance: ABATACEPT
  2. KEVZARA [Suspect]
     Active Substance: SARILUMAB
     Indication: RHEUMATOID ARTHRITIS
     Dosage: 200 MG, Q10D
     Route: 058
     Dates: start: 20180814

REACTIONS (4)
  - Product use issue [Unknown]
  - Pain [Unknown]
  - Joint swelling [Unknown]
  - Feeling abnormal [Unknown]
